FAERS Safety Report 7248019-X (Version None)
Quarter: 2011Q1

REPORT INFORMATION
  Report Type: 
  Country: None (occurrence: None)
  Receive Date: 20110127
  Receipt Date: 20110121
  Transmission Date: 20110831
  Serious: Yes (Other)
  Sender: FDA-Public Use
  Company Number: US-JNJFOC-20060906236

PATIENT
  Sex: Female
  Weight: 97.98 kg

DRUGS (9)
  1. RISPERDAL [Suspect]
     Indication: DEPRESSION
     Route: 048
  2. RISPERDAL [Suspect]
     Indication: NIGHTMARE
     Route: 048
  3. RISPERDAL [Suspect]
     Indication: SCHIZOAFFECTIVE DISORDER
     Route: 048
  4. NITREX [Concomitant]
     Route: 065
  5. LEXAPRO [Concomitant]
  6. LEVAQUIN [Concomitant]
     Route: 065
  7. ASPIRIN [Concomitant]
     Route: 065
  8. METAGLIP [Concomitant]
     Route: 065
  9. RISPERDAL [Suspect]
     Indication: SLEEP DISORDER THERAPY
     Route: 048

REACTIONS (1)
  - TYPE 2 DIABETES MELLITUS [None]
